FAERS Safety Report 7019652-5 (Version None)
Quarter: 2010Q3

REPORT INFORMATION
  Report Type: 
  Country: None (occurrence: None)
  Receive Date: 20100928
  Receipt Date: 20100920
  Transmission Date: 20110219
  Serious: Yes (Other)
  Sender: FDA-Public Use
  Company Number: PHHY2010CO62734

PATIENT
  Sex: Female

DRUGS (2)
  1. ACLASTA [Suspect]
     Dosage: 5 MG
  2. ACLASTA [Suspect]
     Dosage: 5 MG/100 ML

REACTIONS (5)
  - GINGIVAL ABSCESS [None]
  - GINGIVAL INFECTION [None]
  - GINGIVAL SWELLING [None]
  - PURULENT DISCHARGE [None]
  - TOOTH EXTRACTION [None]
